FAERS Safety Report 5797583-6 (Version None)
Quarter: 2008Q2

REPORT INFORMATION
  Report Type: 
  Country: None (occurrence: None)
  Receive Date: 20080618
  Receipt Date: 20080411
  Transmission Date: 20081010
  Serious: Yes (Other)
  Sender: FDA-Public Use
  Company Number: 200812355US

PATIENT
  Age: 59 Year
  Sex: Male

DRUGS (7)
  1. LANTUS [Suspect]
     Indication: TYPE 2 DIABETES MELLITUS
     Dosage: 40 U SC
     Route: 058
     Dates: end: 20080411
  2. LANTUS [Suspect]
     Indication: TYPE 2 DIABETES MELLITUS
     Dosage: 40 U SC
     Route: 058
     Dates: end: 20080411
  3. LANTUS [Suspect]
     Indication: TYPE 2 DIABETES MELLITUS
     Dosage: 35 U SC
     Route: 058
     Dates: start: 20080412
  4. INSULIN HUMAN [Concomitant]
  5. PRAVASTIN SODIUM (PRAVACOL) [Concomitant]
  6. LORATADINE [Concomitant]
  7. LISINOPRIL [Concomitant]

REACTIONS (8)
  - BLOOD GLUCOSE DECREASED [None]
  - BLOOD GLUCOSE INCREASED [None]
  - DIZZINESS [None]
  - FATIGUE [None]
  - HYPOGLYCAEMIA [None]
  - LOSS OF CONSCIOUSNESS [None]
  - MOVEMENT DISORDER [None]
  - VISUAL DISTURBANCE [None]
